FAERS Safety Report 20004089 (Version 1)
Quarter: 2021Q4

REPORT INFORMATION
  Report Type: Spontaneous
  Country: GB (occurrence: GB)
  Receive Date: 20211028
  Receipt Date: 20211028
  Transmission Date: 20220303
  Serious: Yes (Other)
  Sender: FDA-Public Use
  Company Number: None

PATIENT
  Age: 56 Year
  Sex: Female
  Weight: 67 kg

DRUGS (1)
  1. PICATO [Suspect]
     Active Substance: INGENOL MEBUTATE
     Indication: Actinic keratosis
     Dates: start: 20150106, end: 20150109

REACTIONS (2)
  - Basal cell carcinoma [Recovered/Resolved]
  - Skin neoplasm excision [Recovered/Resolved]

NARRATIVE: CASE EVENT DATE: 20180501
